FAERS Safety Report 4596432-1 (Version None)
Quarter: 2005Q1

REPORT INFORMATION
  Report Type: 
  Country: None (occurrence: None)
  Receive Date: 20050225
  Receipt Date: 20050225
  Transmission Date: 20050727
  Serious: Yes (Hospitalization)
  Sender: FDA-Public Use
  Company Number: None

PATIENT
  Age: 66 Year
  Sex: Female

DRUGS (1)
  1. IRESSA [Suspect]
     Indication: LUNG NEOPLASM MALIGNANT
     Dosage: 250MG   DAILY    ORAL
     Route: 048
     Dates: start: 20041225, end: 20050130

REACTIONS (2)
  - DEHYDRATION [None]
  - DIARRHOEA [None]
